FAERS Safety Report 18436910 (Version 2)
Quarter: 2021Q1

REPORT INFORMATION
  Report Type: Spontaneous
  Country: US (occurrence: US)
  Receive Date: 20201028
  Receipt Date: 20210104
  Transmission Date: 20210419
  Serious: Yes (Life-Threatening, Hospitalization)
  Sender: FDA-Public Use
  Company Number: US-MYLANLABS-2020M1090629

PATIENT
  Age: 32 Year
  Sex: Female

DRUGS (2)
  1. PREDNISONE. [Suspect]
     Active Substance: PREDNISONE
     Indication: CROHN^S DISEASE
     Dosage: UNK
     Route: 048
  2. ADALIMUMAB [Suspect]
     Active Substance: ADALIMUMAB
     Indication: CROHN^S DISEASE
     Dosage: UNK
     Route: 065

REACTIONS (9)
  - Cardiac tamponade [Recovering/Resolving]
  - Pericardial effusion [Unknown]
  - Histoplasmosis disseminated [Unknown]
  - Intestinal perforation [Unknown]
  - Atelectasis [Unknown]
  - Right ventricular diastolic collapse [Unknown]
  - Pleural effusion [Unknown]
  - Peritonitis [Recovering/Resolving]
  - Ascites [Unknown]
